FAERS Safety Report 9248970 (Version 1)
Quarter: 2013Q1

REPORT INFORMATION
  Report Type: Spontaneous
  Country: US (occurrence: None)
  Receive Date: 20121120
  Receipt Date: 20121120
  Transmission Date: 20140127
  Serious: No
  Sender: FDA-Public Use
  Company Number: 1000038581

PATIENT
  Age: 68 Year
  Sex: Female

DRUGS (8)
  1. VIIBRYD [Suspect]
     Indication: DEPRESSION
     Dosage: 10 MG (10 MG, 1 IN 1 D, ORAL
     Route: 048
     Dates: start: 20120822, end: 20120828
  2. LEVOTHYROXINE (LEVOTHYROXINE SODIUM) [Concomitant]
  3. SPIRONOLCTONE (SPIRONOLACTONE) (SPIRONOLACTONE) [Concomitant]
  4. OXYMORPHONE (OXYMORPHONE) (OXYMORPHONE) [Concomitant]
  5. KLOR-CON (POTASSIUM CHLORIDE)  (POTASSIUM CHLORIDE) [Concomitant]
  6. AMLODIPINE (AMLODIPINE) (AMLODIPINE) [Concomitant]
  7. VESICARE (SOLIFENACIN SUCCINATE) (SOLIFENACIN SUCCINATE) [Concomitant]
  8. GENERLAC SOLUTION SUCCINATE) (SOLIFENACIN SUCCINATE) [Concomitant]

REACTIONS (2)
  - Joint stiffness [None]
  - Joint swelling [None]
